FAERS Safety Report 11825187 (Version 10)
Quarter: 2019Q3

REPORT INFORMATION
  Report Type: Report from Study
  Country: BR (occurrence: BR)
  Receive Date: 20151211
  Receipt Date: 20190830
  Transmission Date: 20191004
  Serious: Yes (Other)
  Sender: FDA-Public Use
  Company Number: BR-ROCHE-1593406

PATIENT
  Age: 56 Year
  Sex: Female
  Weight: 80 kg

DRUGS (30)
  1. ALENDRONATE SODIUM. [Concomitant]
     Active Substance: ALENDRONATE SODIUM
     Dosage: IN THE MORNING, IN FASTING
     Route: 065
  2. METHOTREXATE. [Concomitant]
     Active Substance: METHOTREXATE
     Dosage: ML EACH AMPOULE, 1 TIME A WEEK EACH BOTTLE
     Route: 065
  3. CARVEDILOL. [Concomitant]
     Active Substance: CARVEDILOL
     Route: 065
  4. METFORMIN [Concomitant]
     Active Substance: METFORMIN HYDROCHLORIDE
     Dosage: 1 TABLET AT BREAKFAST AND 1 TABLET AT DINNER
     Route: 065
  5. MIOCALVEN [Concomitant]
     Indication: RHEUMATIC DISORDER
     Route: 065
  6. LEFLUNOMIDE. [Concomitant]
     Active Substance: LEFLUNOMIDE
     Route: 065
  7. THYROXINE SODIUM [Concomitant]
     Active Substance: LEVOTHYROXINE SODIUM
     Route: 065
  8. PURAN [Concomitant]
     Active Substance: LEVOTHYROXINE SODIUM
     Indication: HYPOTHYROIDISM
     Route: 065
  9. NPH INSULIN [Concomitant]
     Active Substance: INSULIN BEEF
     Indication: DIABETES MELLITUS
  10. SIMVASTATIN. [Concomitant]
     Active Substance: SIMVASTATIN
  11. ACTEMRA [Suspect]
     Active Substance: TOCILIZUMAB
     Dosage: MOSR RECENT INFUSION
     Route: 042
     Dates: start: 20161201, end: 20161208
  12. DICLOFENAC [Concomitant]
     Active Substance: DICLOFENAC
     Route: 065
  13. NPH [ISOPHANE INSULIN] [Concomitant]
     Active Substance: INSULIN NOS
     Route: 065
  14. ACTEMRA [Suspect]
     Active Substance: TOCILIZUMAB
     Indication: RHEUMATOID ARTHRITIS
     Route: 042
     Dates: start: 20150606
  15. ATENSINA [Concomitant]
     Active Substance: CLONIDINE
     Indication: HYPERTENSION
     Dosage: 1 TABLET, TWICE A DAY
     Route: 065
  16. HYDROCHLOROTHIAZIDE. [Concomitant]
     Active Substance: HYDROCHLOROTHIAZIDE
  17. OMEPRAZOLE. [Concomitant]
     Active Substance: OMEPRAZOLE
     Indication: THYROID DISORDER
     Dosage: 1 TABLET IN FASTING
     Route: 065
  18. MABTHERA [Suspect]
     Active Substance: RITUXIMAB
     Indication: RHEUMATOID ARTHRITIS
     Route: 042
     Dates: start: 20170124
  19. ENALAPRIL [Concomitant]
     Active Substance: ENALAPRIL
  20. PREDNISONE. [Concomitant]
     Active Substance: PREDNISONE
     Dosage: 3.5 IN ONE DAY
     Route: 065
  21. LOSARTAN. [Concomitant]
     Active Substance: LOSARTAN
     Dosage: 1 TABLET IN THE MORNING AND 1 TABLET AT NIGHT
     Route: 065
  22. SERTRALINE [Concomitant]
     Active Substance: SERTRALINE HYDROCHLORIDE
     Route: 065
  23. METHYLDOPA. [Concomitant]
     Active Substance: METHYLDOPA
     Indication: HYPERTENSION
     Route: 065
  24. FUROSEMIDE. [Concomitant]
     Active Substance: FUROSEMIDE
  25. JANUMET [Concomitant]
     Active Substance: METFORMIN HYDROCHLORIDE\SITAGLIPTIN PHOSPHATE
     Indication: DIABETES MELLITUS
     Route: 065
  26. MABTHERA [Suspect]
     Active Substance: RITUXIMAB
     Route: 042
     Dates: start: 20170125
  27. METHOTREXATE. [Concomitant]
     Active Substance: METHOTREXATE
     Route: 065
  28. GLIBENCLAMIDE [Concomitant]
     Active Substance: GLYBURIDE
     Route: 065
  29. BEZAFIBRATE [Concomitant]
     Active Substance: BEZAFIBRATE
     Indication: BLOOD CHOLESTEROL ABNORMAL
  30. FENERGAN [PROMETHAZINE] [Concomitant]

REACTIONS (24)
  - Cholecystitis [Unknown]
  - Weight decreased [Unknown]
  - Red blood cell sedimentation rate abnormal [Unknown]
  - Tremor [Recovering/Resolving]
  - Gastric polyps [Recovering/Resolving]
  - Gastric infection [Recovering/Resolving]
  - Throat tightness [Recovered/Resolved]
  - Dysstasia [Not Recovered/Not Resolved]
  - Headache [Not Recovered/Not Resolved]
  - Chest pain [Not Recovered/Not Resolved]
  - Dyspnoea [Recovered/Resolved]
  - Hypersensitivity [Recovering/Resolving]
  - Visual impairment [Recovering/Resolving]
  - Drug hypersensitivity [Recovered/Resolved]
  - Pain in extremity [Recovered/Resolved]
  - Diabetes mellitus inadequate control [Recovered/Resolved]
  - Arrhythmia [Recovering/Resolving]
  - Malaise [Recovered/Resolved]
  - Drug ineffective [Unknown]
  - Cholelithiasis [Recovering/Resolving]
  - Gallbladder disorder [Unknown]
  - Skin disorder [Unknown]
  - Nasopharyngitis [Recovering/Resolving]
  - Pyrexia [Recovered/Resolved]

NARRATIVE: CASE EVENT DATE: 20151121
